FAERS Safety Report 8480937-7 (Version None)
Quarter: 2012Q3

REPORT INFORMATION
  Report Type: 
  Country: None (occurrence: None)
  Receive Date: 20120702
  Receipt Date: 20120621
  Transmission Date: 20120928
  Serious: Yes (Other)
  Sender: FDA-Public Use
  Company Number: US-JNJFOC-20120611751

PATIENT
  Sex: Male
  Weight: 75.75 kg

DRUGS (4)
  1. REMICADE [Suspect]
     Indication: SPONDYLOARTHROPATHY
     Route: 042
     Dates: start: 20120501, end: 20120501
  2. REMICADE [Suspect]
     Indication: COLITIS ULCERATIVE
     Route: 042
     Dates: start: 20120501, end: 20120501
  3. SINGULAIR [Concomitant]
     Indication: ANGIOEDEMA
     Route: 048
  4. DEXILANT [Concomitant]
     Indication: GASTROOESOPHAGEAL REFLUX DISEASE
     Route: 048

REACTIONS (4)
  - ASTHENIA [None]
  - INSOMNIA [None]
  - NIGHT SWEATS [None]
  - FATIGUE [None]
